FAERS Safety Report 21674435 (Version 1)
Quarter: 2022Q4

REPORT INFORMATION
  Report Type: Spontaneous
  Country: IT (occurrence: IT)
  Receive Date: 20221202
  Receipt Date: 20221202
  Transmission Date: 20230113
  Serious: Yes (Hospitalization)
  Sender: FDA-Public Use
  Company Number: IT-PFIZER INC-202201334111

PATIENT
  Age: 52 Year
  Sex: Female

DRUGS (3)
  1. MEROPENEM [Suspect]
     Active Substance: MEROPENEM
     Indication: Klebsiella bacteraemia
     Dosage: UNK
  2. TIGECYCLINE [Suspect]
     Active Substance: TIGECYCLINE
     Indication: Klebsiella bacteraemia
  3. COLISTIN [Suspect]
     Active Substance: COLISTIN
     Indication: Klebsiella bacteraemia
     Dosage: 8 MG

REACTIONS (2)
  - Hydrocephalus [Unknown]
  - Condition aggravated [Unknown]
